FAERS Safety Report 7041513-6 (Version None)
Quarter: 2010Q4

REPORT INFORMATION
  Report Type: 
  Country: None (occurrence: None)
  Receive Date: 20101013
  Receipt Date: 20100330
  Transmission Date: 20110411
  Serious: No
  Sender: FDA-Public Use
  Company Number: US-ASTRAZENECA-2010SE14047

PATIENT
  Sex: Female

DRUGS (2)
  1. SYMBICORT [Suspect]
     Indication: BRONCHITIS
     Dosage: 320 MCG, 2 PUFFS ONCE DAILY
     Route: 055
     Dates: start: 20100101
  2. SYMBICORT [Suspect]
     Dosage: 640 MCG, 2 PUFFS TWICE DAILY
     Route: 055
     Dates: start: 20100301

REACTIONS (3)
  - BRONCHITIS [None]
  - EAR INFECTION [None]
  - SINUSITIS [None]
